FAERS Safety Report 18774948 (Version 1)
Quarter: 2021Q1

REPORT INFORMATION
  Report Type: Spontaneous
  Country: AU (occurrence: AU)
  Receive Date: 20210122
  Receipt Date: 20210122
  Transmission Date: 20210419
  Serious: Yes (Other)
  Sender: FDA-Public Use
  Company Number: AU-OXFORD PHARMACEUTICALS, LLC-2105706

PATIENT
  Age: 23 Year

DRUGS (3)
  1. MEDROXYPROGESTERONE ACETATE. [Suspect]
     Active Substance: MEDROXYPROGESTERONE ACETATE
  2. SPIRONOLACTONE TABLETS, 25MG, 50MG, 100MG [Suspect]
     Active Substance: SPIRONOLACTONE
     Indication: HORMONE THERAPY
  3. ESTRADIOL. [Suspect]
     Active Substance: ESTRADIOL
     Route: 059

REACTIONS (3)
  - Galactorrhoea [Recovered/Resolved]
  - Hyperprolactinaemia [Recovered/Resolved]
  - Prolactin-producing pituitary tumour [Unknown]
